FAERS Safety Report 4984720-6 (Version None)
Quarter: 2006Q2

REPORT INFORMATION
  Report Type: 
  Country: None (occurrence: None)
  Receive Date: 20060427
  Receipt Date: 20060320
  Transmission Date: 20061013
  Serious: Yes (Hospitalization)
  Sender: FDA-Public Use
  Company Number: US-MERCK-0603USA03150

PATIENT
  Age: 50 Year
  Sex: Female
  Weight: 66 kg

DRUGS (2)
  1. VIOXX [Suspect]
     Indication: JOINT INJURY
     Route: 048
     Dates: start: 19991201, end: 20010801
  2. VIOXX [Suspect]
     Indication: BACK INJURY
     Route: 048
     Dates: start: 19991201, end: 20010801

REACTIONS (8)
  - CARDIAC DISORDER [None]
  - CEREBROVASCULAR DISORDER [None]
  - DIABETES MELLITUS [None]
  - DRUG HYPERSENSITIVITY [None]
  - HERNIA REPAIR [None]
  - MECHANICAL COMPLICATION OF IMPLANT [None]
  - MYOCARDIAL INFARCTION [None]
  - OVERDOSE [None]
